FAERS Safety Report 11350419 (Version 5)
Quarter: 2016Q2

REPORT INFORMATION
  Report Type: Spontaneous
  Country: JP (occurrence: JP)
  Receive Date: 20150807
  Receipt Date: 20160408
  Transmission Date: 20160815
  Serious: Yes (Death, Life-Threatening, Hospitalization, Other)
  Sender: FDA-Public Use
  Company Number: PHJP2015JP013407

PATIENT
  Age: 79 Year
  Sex: Male
  Weight: 71 kg

DRUGS (11)
  1. OLMETEC [Concomitant]
     Active Substance: OLMESARTAN MEDOXOMIL
     Indication: HYPERTENSION
     Dosage: 20 MG, BID
     Route: 048
  2. THYRADIN-S [Concomitant]
     Active Substance: LEVOTHYROXINE
     Indication: HYPOTHYROIDISM
     Dosage: 50 UG, QD
     Route: 048
     Dates: start: 20141111, end: 20150720
  3. REBAMIPIDE AMEL [Concomitant]
     Indication: PROPHYLAXIS
     Dosage: 100 MG, TID
     Route: 048
     Dates: start: 20110309, end: 20150728
  4. NAIXAN [Concomitant]
     Active Substance: NAPROXEN SODIUM
     Indication: GOUT
     Dosage: 100 MG, QD
     Route: 048
     Dates: start: 20150702, end: 20150708
  5. ZOLPIDEM [Concomitant]
     Active Substance: ZOLPIDEM\ZOLPIDEM TARTRATE
     Indication: INSOMNIA
     Dosage: 10 MG, QD
     Route: 048
     Dates: start: 20150702, end: 20150708
  6. AMLODIN [Concomitant]
     Active Substance: AMLODIPINE BESYLATE
     Indication: HYPERTENSION
     Dosage: 5 MG, BID
     Route: 048
     Dates: end: 20150728
  7. WARFARIN [Concomitant]
     Active Substance: WARFARIN
     Indication: ANGINA PECTORIS
     Dosage: 2 MG, QD
     Route: 048
     Dates: end: 20150728
  8. ALOSITOL [Concomitant]
     Active Substance: ALLOPURINOL
     Indication: HYPERURICAEMIA
     Dosage: 100 MG, QD
     Route: 048
     Dates: end: 20150728
  9. AFINITOR [Suspect]
     Active Substance: EVEROLIMUS
     Indication: METASTATIC RENAL CELL CARCINOMA
     Dosage: 5 MG, BID
     Route: 048
     Dates: start: 20150528, end: 20150625
  10. PRORNER [Concomitant]
     Active Substance: BERAPROST SODIUM
     Indication: ANGINA PECTORIS
     Dosage: 40 UG, TID
     Route: 048
     Dates: start: 20110622, end: 20150728
  11. PRAVASTATIN [Concomitant]
     Active Substance: PRAVASTATIN\PRAVASTATIN SODIUM
     Indication: HYPERLIPIDAEMIA
     Dosage: 10 MG, QD
     Route: 048
     Dates: start: 20120118, end: 20150728

REACTIONS (32)
  - Malaise [Fatal]
  - Shock [Unknown]
  - Hepatic failure [Unknown]
  - Interstitial lung disease [Fatal]
  - Productive cough [Fatal]
  - Respiratory failure [Fatal]
  - Blood creatinine increased [Not Recovered/Not Resolved]
  - General physical health deterioration [Unknown]
  - Pyrexia [Fatal]
  - Circulatory collapse [Unknown]
  - Bacteraemia [Unknown]
  - Renal failure [Unknown]
  - Pleural effusion [Unknown]
  - Dyspnoea [Fatal]
  - Generalised oedema [Unknown]
  - Pneumomediastinum [Unknown]
  - Hypocoagulable state [Unknown]
  - Blood potassium increased [Unknown]
  - Oxygen saturation decreased [Unknown]
  - Mucous membrane disorder [Unknown]
  - Respiratory tract infection [Unknown]
  - Cardiac failure [Unknown]
  - Malignant neoplasm progression [Unknown]
  - Pulmonary oedema [Unknown]
  - Lactic acidosis [Unknown]
  - Platelet count decreased [Unknown]
  - Ascites [Unknown]
  - Cough [Fatal]
  - Disseminated intravascular coagulation [Unknown]
  - Oliguria [Unknown]
  - Melaena [Unknown]
  - Chest pain [Unknown]

NARRATIVE: CASE EVENT DATE: 201506
